FAERS Safety Report 19270660 (Version 1)
Quarter: 2021Q2

REPORT INFORMATION
  Report Type: Report from Study
  Country: US (occurrence: US)
  Receive Date: 20210518
  Receipt Date: 20210518
  Transmission Date: 20210717
  Serious: Yes (Hospitalization)
  Sender: FDA-Public Use
  Company Number: US-EXELIXIS-XL18421040311

PATIENT
  Age: 65 Year
  Sex: Male
  Weight: 101.5 kg

DRUGS (3)
  1. NIVOLUMAB [Suspect]
     Active Substance: NIVOLUMAB
     Indication: NEUROENDOCRINE CARCINOMA
     Dosage: UNK
     Dates: start: 20210115
  2. IPILIMUMAB [Suspect]
     Active Substance: IPILIMUMAB
     Indication: NEUROENDOCRINE CARCINOMA
     Dosage: UNK
     Dates: start: 20210115
  3. XL184 [Suspect]
     Active Substance: CABOZANTINIB
     Indication: NEUROENDOCRINE CARCINOMA
     Dosage: 40 MG
     Dates: start: 20210115

REACTIONS (1)
  - Pericardial effusion [Recovering/Resolving]

NARRATIVE: CASE EVENT DATE: 20210413
